FAERS Safety Report 7364693-1 (Version None)
Quarter: 2011Q1

REPORT INFORMATION
  Report Type: 
  Country: None (occurrence: None)
  Receive Date: 20110321
  Receipt Date: 20110313
  Transmission Date: 20110831
  Serious: Yes (Hospitalization)
  Sender: FDA-Public Use
  Company Number: US-GENZYME-CAMP-1001458

PATIENT
  Sex: Female
  Weight: 70.295 kg

DRUGS (20)
  1. CAMPATH [Suspect]
     Indication: MULTIPLE SCLEROSIS
     Dosage: 24 MG, QDX5
     Route: 042
     Dates: start: 20080811, end: 20080815
  2. ALPRAZOLAM [Concomitant]
     Indication: ANXIETY
     Dosage: 0.5 MG, TID
  3. AMMONIA [Concomitant]
     Indication: PRODUCT USED FOR UNKNOWN INDICATION
     Dosage: UNK
     Route: 061
  4. OXYCODONE [Concomitant]
     Indication: PRODUCT USED FOR UNKNOWN INDICATION
     Dosage: 5 MG, PRN
  5. TOBRAMYCIN [Concomitant]
     Indication: PRODUCT USED FOR UNKNOWN INDICATION
  6. CAMPATH [Suspect]
     Dosage: 24 MG, QD
     Route: 042
     Dates: start: 20090812, end: 20090813
  7. PROMETHAZINE [Concomitant]
     Indication: PRODUCT USED FOR UNKNOWN INDICATION
     Dosage: 25 MG, PRN
  8. ATENOLOL [Concomitant]
     Indication: HYPERTENSION
     Dosage: 12.5 UNK, QD
     Route: 048
  9. CLINDAMYCIN [Concomitant]
     Indication: PRODUCT USED FOR UNKNOWN INDICATION
     Dosage: 600 MG, QD
     Route: 048
  10. CYMBALTA [Concomitant]
     Indication: PRODUCT USED FOR UNKNOWN INDICATION
     Dosage: 60 MG, UNK
  11. TIZANIDINE [Concomitant]
     Indication: MULTIPLE SCLEROSIS
     Dosage: 8 MG, QID
  12. EYE DROPS [Concomitant]
     Indication: PRODUCT USED FOR UNKNOWN INDICATION
     Dosage: UNK
     Route: 047
     Dates: start: 20110217
  13. CLINDAMYCIN [Concomitant]
     Dosage: 600 UNK, QD
     Route: 061
  14. METAMUCIL-2 [Concomitant]
     Indication: PRODUCT USED FOR UNKNOWN INDICATION
  15. CAMPATH [Suspect]
     Dosage: 24 MG, QD
     Route: 042
     Dates: start: 20090810, end: 20090810
  16. NORVASC [Concomitant]
     Indication: HYPERTENSION
     Dosage: 5 UNK, QD
     Route: 048
  17. LIDOCAINE [Concomitant]
     Indication: PRODUCT USED FOR UNKNOWN INDICATION
     Dosage: UNK
     Route: 061
  18. ACIPHEX [Concomitant]
     Indication: PRODUCT USED FOR UNKNOWN INDICATION
     Dosage: 20 UNK, PRN
  19. DEXAMETHASONE [Concomitant]
     Indication: PRODUCT USED FOR UNKNOWN INDICATION
     Dosage: UNK
  20. LYRICA [Concomitant]
     Indication: PRODUCT USED FOR UNKNOWN INDICATION
     Dosage: 75 UNK, TID

REACTIONS (1)
  - HERPES ZOSTER [None]
